FAERS Safety Report 4409582-7 (Version None)
Quarter: 2004Q3

REPORT INFORMATION
  Report Type: 
  Country: None (occurrence: None)
  Receive Date: 20040728
  Receipt Date: 20040421
  Transmission Date: 20050211
  Serious: Yes (Other)
  Sender: FDA-Public Use
  Company Number: GB-AMGEN-US074126

PATIENT
  Sex: Female

DRUGS (2)
  1. ENBREL [Suspect]
     Indication: DRUG USE FOR UNKNOWN INDICATION
     Dates: start: 20040101
  2. PREDNISOLONE [Concomitant]

REACTIONS (3)
  - LYMPHOCYTOSIS [None]
  - LYMPHOMA [None]
  - NEUTROPENIA [None]
